FAERS Safety Report 18749107 (Version 5)
Quarter: 2025Q2

REPORT INFORMATION
  Report Type: Spontaneous
  Country: PT (occurrence: PT)
  Receive Date: 20210116
  Receipt Date: 20250628
  Transmission Date: 20250717
  Serious: Yes (Hospitalization, Other)
  Sender: AUROBINDO
  Company Number: PT-MYLANLABS-2020M1106835

PATIENT
  Age: 69 Year
  Sex: Male

DRUGS (18)
  1. LEVOFLOXACIN [Suspect]
     Active Substance: LEVOFLOXACIN
     Indication: Pneumonia necrotising
     Route: 065
  2. LEVOFLOXACIN [Suspect]
     Active Substance: LEVOFLOXACIN
     Indication: Antibiotic therapy
     Route: 042
  3. LINEZOLID [Suspect]
     Active Substance: LINEZOLID
     Indication: Rhodococcus infection
     Route: 065
     Dates: start: 2018, end: 201807
  4. LINEZOLID [Suspect]
     Active Substance: LINEZOLID
     Route: 042
     Dates: start: 201804, end: 201807
  5. GENTAMICIN [Suspect]
     Active Substance: GENTAMICIN
     Indication: Rhodococcus infection
     Route: 065
     Dates: start: 2018, end: 201901
  6. GENTAMICIN [Suspect]
     Active Substance: GENTAMICIN
     Indication: Brain abscess
     Route: 042
     Dates: start: 201804, end: 201907
  7. LINEZOLID [Suspect]
     Active Substance: LINEZOLID
     Indication: Brain abscess
     Route: 065
     Dates: end: 201807
  8. AMOXICILLIN\CLAVULANIC ACID [Concomitant]
     Active Substance: AMOXICILLIN\CLAVULANIC ACID
     Indication: Pneumonia necrotising
     Route: 042
  9. AZITHROMYCIN [Concomitant]
     Active Substance: AZITHROMYCIN
     Indication: Pneumonia necrotising
     Route: 065
  10. CLARITHROMYCIN [Concomitant]
     Active Substance: CLARITHROMYCIN
     Indication: Brain abscess
     Route: 065
     Dates: start: 201807
  11. CLARITHROMYCIN [Concomitant]
     Active Substance: CLARITHROMYCIN
     Indication: Rhodococcus infection
  12. DOXYCYCLINE [Concomitant]
     Active Substance: DOXYCYCLINE
     Indication: Brain abscess
     Route: 065
     Dates: start: 201901
  13. ERTAPENEM [Concomitant]
     Active Substance: ERTAPENEM
     Indication: Brain abscess
     Route: 065
  14. ERTAPENEM [Concomitant]
     Active Substance: ERTAPENEM
     Indication: Rhodococcus infection
     Route: 042
     Dates: start: 201804
  15. RIFAMPIN [Concomitant]
     Active Substance: RIFAMPIN
     Indication: Pneumonia necrotising
     Route: 042
  16. RIFAMPIN [Concomitant]
     Active Substance: RIFAMPIN
     Indication: Antibiotic therapy
  17. ENTECAVIR [Concomitant]
     Active Substance: ENTECAVIR
     Indication: Chronic hepatitis B
     Route: 065
  18. LEVOTHYROXINE [Concomitant]
     Active Substance: LEVOTHYROXINE
     Indication: Hypothyroidism
     Route: 065

REACTIONS (5)
  - Infection [Unknown]
  - Myelosuppression [Unknown]
  - Ototoxicity [Unknown]
  - Nephropathy toxic [Unknown]
  - Product use issue [Recovered/Resolved]

NARRATIVE: CASE EVENT DATE: 20190701
